FAERS Safety Report 5946840-9 (Version None)
Quarter: 2008Q4

REPORT INFORMATION
  Report Type: 
  Country: None (occurrence: None)
  Receive Date: 20081107
  Receipt Date: 20081107
  Transmission Date: 20090506
  Serious: Yes (Other)
  Sender: FDA-Public Use
  Company Number: None

PATIENT
  Age: 56 Year
  Sex: Female
  Weight: 53.5244 kg

DRUGS (4)
  1. TRIAMCINOLONE [Suspect]
     Indication: PAIN
     Dosage: TWO INJECTIONS EPIDURAL
     Route: 008
     Dates: start: 20080617, end: 20080617
  2. TRIAMCINOLONE [Suspect]
     Indication: PAIN
     Dosage: TWO INJECTIONS EPIDURAL
     Route: 008
     Dates: start: 20080710, end: 20080717
  3. LIPITOR [Concomitant]
  4. ASPIRIN [Concomitant]

REACTIONS (15)
  - ABDOMINAL DISTENSION [None]
  - AFFECTIVE DISORDER [None]
  - ASTHENIA [None]
  - BURNING SENSATION [None]
  - INSOMNIA [None]
  - IRRITABILITY [None]
  - MUSCLE TWITCHING [None]
  - MYALGIA [None]
  - NAUSEA [None]
  - NEUROPATHY PERIPHERAL [None]
  - PANIC ATTACK [None]
  - PARAESTHESIA [None]
  - RASH ERYTHEMATOUS [None]
  - SKIN DISORDER [None]
  - SYNCOPE [None]
